FAERS Safety Report 11100757 (Version 2)
Quarter: 2015Q2

REPORT INFORMATION
  Report Type: Report from Study
  Country: AU (occurrence: AU)
  Receive Date: 20150508
  Receipt Date: 20150521
  Transmission Date: 20150821
  Serious: Yes (Life-Threatening, Hospitalization)
  Sender: FDA-Public Use
  Company Number: PHHY2013AU065054

PATIENT
  Age: 37 Year
  Sex: Male
  Weight: 93.7 kg

DRUGS (10)
  1. CLOZARIL [Suspect]
     Active Substance: CLOZAPINE
     Dosage: 300 MG, UNK
     Route: 065
     Dates: start: 20100128, end: 2013
  2. EPILIM [Concomitant]
     Active Substance: VALPROATE SODIUM
     Indication: PRODUCT USED FOR UNKNOWN INDICATION
     Dosage: UNK
     Route: 065
  3. RIVOTRIL [Concomitant]
     Active Substance: CLONAZEPAM
     Indication: PRODUCT USED FOR UNKNOWN INDICATION
     Dosage: 0.5 MG, PRN
     Route: 065
  4. CLOZARIL [Suspect]
     Active Substance: CLOZAPINE
     Indication: SCHIZOPHRENIA
     Dosage: UNK
     Route: 065
     Dates: start: 2001
  5. EPILIM [Concomitant]
     Active Substance: VALPROATE SODIUM
     Dosage: UNK
     Route: 065
  6. SODIUM VALPROATE [Concomitant]
     Active Substance: VALPROATE SODIUM
     Dosage: 2 G, BID
     Route: 065
  7. OLANZAPINE. [Concomitant]
     Active Substance: OLANZAPINE
     Indication: PRODUCT USED FOR UNKNOWN INDICATION
     Dosage: 30 MG, QD NIGHT
     Route: 065
  8. PARACETAMOL [Concomitant]
     Active Substance: ACETAMINOPHEN
     Indication: PRODUCT USED FOR UNKNOWN INDICATION
     Dosage: UNK
     Route: 065
  9. SODIUM VALPROATE [Concomitant]
     Active Substance: VALPROATE SODIUM
     Indication: AFFECTIVE DISORDER
     Dosage: UNK
     Route: 065
  10. HALOPERIDOL. [Concomitant]
     Active Substance: HALOPERIDOL
     Indication: PRODUCT USED FOR UNKNOWN INDICATION
     Dosage: 10 MG, BID
     Route: 065

REACTIONS (17)
  - White blood cell count increased [Recovered/Resolved]
  - Left ventricular dysfunction [Unknown]
  - Gamma-glutamyltransferase increased [Recovered/Resolved]
  - Lymphocyte count decreased [Recovered/Resolved]
  - Generalised tonic-clonic seizure [Unknown]
  - Electrocardiogram abnormal [Unknown]
  - Aortic valve incompetence [Unknown]
  - Anion gap increased [Recovered/Resolved]
  - Left ventricular hypertrophy [Unknown]
  - Aortic dilatation [Unknown]
  - Blood magnesium increased [Unknown]
  - Neutrophil count increased [Recovered/Resolved]
  - Blood glucose increased [Recovered/Resolved]
  - Dilatation atrial [Unknown]
  - Myoclonus [Unknown]
  - Blood bicarbonate decreased [Recovered/Resolved]
  - C-reactive protein increased [Not Recovered/Not Resolved]

NARRATIVE: CASE EVENT DATE: 20110918
